FAERS Safety Report 6915826-X (Version None)
Quarter: 2010Q3

REPORT INFORMATION
  Report Type: 
  Country: None (occurrence: None)
  Receive Date: 20100810
  Receipt Date: 20100514
  Transmission Date: 20110219
  Serious: No
  Sender: FDA-Public Use
  Company Number: A0859786A

PATIENT
  Sex: Female

DRUGS (1)
  1. PAXIL [Suspect]
     Indication: OBSESSIVE-COMPULSIVE DISORDER
     Route: 048
     Dates: start: 20020101, end: 20060101

REACTIONS (2)
  - DRUG ADMINISTRATION ERROR [None]
  - FEELING ABNORMAL [None]
